FAERS Safety Report 8086275-9 (Version None)
Quarter: 2012Q1

REPORT INFORMATION
  Report Type: 
  Country: None (occurrence: None)
  Receive Date: 20120128
  Receipt Date: 20110428
  Transmission Date: 20120608
  Serious: No
  Sender: FDA-Public Use
  Company Number: US-ABBOTT-11P-163-0722319-00

PATIENT
  Age: 62 Year
  Sex: Female

DRUGS (8)
  1. ASPIRIN [Concomitant]
     Indication: PROPHYLAXIS
  2. TIGARD (PRESCRIPTION VITAMIN B COMPLEX) [Concomitant]
     Indication: PRODUCT USED FOR UNKNOWN INDICATION
  3. CINNAMON [Concomitant]
     Indication: SUPPLEMENTATION THERAPY
  4. MELOXICAM [Concomitant]
     Indication: PRODUCT USED FOR UNKNOWN INDICATION
     Dosage: 7.5 MG IN AM AND PM
  5. FISH OIL [Concomitant]
     Indication: SUPPLEMENTATION THERAPY
  6. HUMIRA [Suspect]
     Indication: RHEUMATOID ARTHRITIS
     Dates: start: 20070101
  7. METHOTREXATE [Concomitant]
     Indication: RHEUMATOID ARTHRITIS
     Dosage: 4 TABS SAT/SUN
  8. PANTOPRAZOLE [Concomitant]
     Indication: PRODUCT USED FOR UNKNOWN INDICATION
     Dosage: IN AM

REACTIONS (6)
  - INCORRECT DOSE ADMINISTERED [None]
  - INJECTION SITE ERYTHEMA [None]
  - WRONG TECHNIQUE IN DRUG USAGE PROCESS [None]
  - OSTEOPOROSIS [None]
  - INJECTION SITE PAIN [None]
  - BLOOD CHOLESTEROL INCREASED [None]
